FAERS Safety Report 23146046 (Version 1)
Quarter: 2023Q4

REPORT INFORMATION
  Report Type: Spontaneous
  Country: NL (occurrence: NL)
  Receive Date: 20231104
  Receipt Date: 20231104
  Transmission Date: 20240110
  Serious: Yes (Hospitalization)
  Sender: FDA-Public Use
  Company Number: NL-LRB-00920055

PATIENT
  Age: 55 Year
  Sex: Female

DRUGS (4)
  1. AMITRIPTYLINE HYDROCHLORIDE [Suspect]
     Active Substance: AMITRIPTYLINE HYDROCHLORIDE
     Indication: Depression
     Dosage: 125 MILLIGRAM, ONCE A DAY (5 TABLETTEN PER DAG (TOTAAL 125 MG))
     Route: 065
     Dates: start: 20221101, end: 20230203
  2. LITHIUM [Concomitant]
     Active Substance: LITHIUM
     Indication: Product used for unknown indication
     Dosage: 400 MILLIGRAM (UNK (TABLET MET GEREGULEERDE AFGIFTE, 400 MG (MILLIGRAM)))
     Route: 065
  3. OXAZEPAM [Concomitant]
     Active Substance: OXAZEPAM
     Indication: Product used for unknown indication
     Dosage: 10 MILLIGRAM (TABLET, 10 MG (MILLIGRAM)
     Route: 065
  4. QUETIAPINE [Concomitant]
     Active Substance: QUETIAPINE
     Indication: Product used for unknown indication
     Dosage: 100 MILLIGRAM (FILMOMHULDE TABLET, 100 MG (MILLIGRAM))
     Route: 065

REACTIONS (2)
  - Dry mouth [Recovering/Resolving]
  - Gastrointestinal motility disorder [Recovering/Resolving]
